APPROVED DRUG PRODUCT: HYDROCHLOROTHIAZIDE
Active Ingredient: HYDROCHLOROTHIAZIDE
Strength: 12.5MG
Dosage Form/Route: CAPSULE;ORAL
Application: A079237 | Product #001
Applicant: IPCA LABORATORIES LTD
Approved: Apr 2, 2009 | RLD: No | RS: No | Type: DISCN